FAERS Safety Report 6649833-1 (Version None)
Quarter: 2010Q1

REPORT INFORMATION
  Report Type: 
  Country: None (occurrence: None)
  Receive Date: 20100325
  Receipt Date: 20100310
  Transmission Date: 20100710
  Serious: Yes (Other)
  Sender: FDA-Public Use
  Company Number: DE-RANBAXY-2010RR-32549

PATIENT
  Sex: Female

DRUGS (1)
  1. OFLOXACIN-RATIOPHARM 200MG FILMTABLETTEN [Suspect]
     Indication: CYSTITIS
     Dosage: UNK
     Route: 048
     Dates: start: 20090501

REACTIONS (1)
  - MUSCLE RUPTURE [None]
